FAERS Safety Report 9075985 (Version 2)
Quarter: 2013Q1

REPORT INFORMATION
  Report Type: Spontaneous
  Country: US (occurrence: US)
  Receive Date: 20130129
  Receipt Date: 20130221
  Transmission Date: 20140127
  Serious: Yes (Death, Congenital Anomaly, Other)
  Sender: FDA-Public Use
  Company Number: US-FRI-1000041995

PATIENT
  Age: 0 None
  Sex: Female

DRUGS (3)
  1. LEXAPRO [Suspect]
     Route: 064
  2. ZOLOFT [Suspect]
     Route: 064
  3. PRENATAL VITAMIN [Suspect]
     Route: 064

REACTIONS (16)
  - Atrial septal defect [Fatal]
  - Multiple cardiac defects [Fatal]
  - Persistent foetal circulation [Fatal]
  - Congenital anomaly [Fatal]
  - Lung disorder [Fatal]
  - Neural tube defect [Fatal]
  - Cleft lip [Fatal]
  - Cleft palate [Fatal]
  - Talipes [Fatal]
  - Cytogenetic abnormality [Fatal]
  - Double outlet right ventricle [Fatal]
  - Transposition of the great vessels [Fatal]
  - Ventricular septal defect [Fatal]
  - Pulmonary artery stenosis congenital [Fatal]
  - Exomphalos [Fatal]
  - Deafness [Fatal]
